FAERS Safety Report 23434449 (Version 1)
Quarter: 2024Q1

REPORT INFORMATION
  Report Type: Spontaneous
  Country: US (occurrence: US)
  Receive Date: 20240123
  Receipt Date: 20240123
  Transmission Date: 20240410
  Serious: No
  Sender: FDA-Public Use
  Company Number: US-NOVOPROD-1120816

PATIENT
  Age: 41 Year
  Sex: Female

DRUGS (2)
  1. WEGOVY [Suspect]
     Active Substance: SEMAGLUTIDE
     Indication: Weight control
     Dosage: 1.7 MG
     Route: 058
     Dates: start: 202305
  2. WEGOVY [Suspect]
     Active Substance: SEMAGLUTIDE
     Dosage: 2.4 CURRENT DOSE
     Route: 058

REACTIONS (3)
  - Amenorrhoea [Recovered/Resolved]
  - Menstruation irregular [Recovered/Resolved]
  - Weight loss poor [Unknown]

NARRATIVE: CASE EVENT DATE: 20230829
